FAERS Safety Report 7992891-2 (Version None)
Quarter: 2011Q4

REPORT INFORMATION
  Report Type: 
  Country: None (occurrence: None)
  Receive Date: 20111219
  Receipt Date: 20101110
  Transmission Date: 20120403
  Serious: No
  Sender: FDA-Public Use
  Company Number: US-ASTRAZENECA-2010SE53908

PATIENT
  Age: 70 Year
  Sex: Female

DRUGS (4)
  1. VITAMIN C [Concomitant]
  2. CALCIUM [Concomitant]
  3. ENABLEX [Concomitant]
  4. CRESTOR [Suspect]
     Route: 048
     Dates: start: 20090101

REACTIONS (1)
  - BLOOD LACTATE DEHYDROGENASE INCREASED [None]
